FAERS Safety Report 7298680-9 (Version None)
Quarter: 2011Q1

REPORT INFORMATION
  Report Type: 
  Country: None (occurrence: None)
  Receive Date: 20110217
  Receipt Date: 20110209
  Transmission Date: 20110831
  Serious: Yes (Hospitalization)
  Sender: FDA-Public Use
  Company Number: ZA-JNJFOC-20110203064

PATIENT
  Age: 15 Year
  Sex: Male

DRUGS (2)
  1. TREPILINE [Suspect]
     Indication: MIGRAINE
     Route: 065
  2. TOPIRAMATE [Suspect]
     Indication: MIGRAINE PROPHYLAXIS
     Dosage: TREATMENT FOR THREE WEEKS
     Route: 048

REACTIONS (3)
  - OROPHARYNGEAL PAIN [None]
  - OFF LABEL USE [None]
  - MYALGIA [None]
